FAERS Safety Report 17916197 (Version 3)
Quarter: 2020Q3

REPORT INFORMATION
  Report Type: Report from Study
  Country: US (occurrence: US)
  Receive Date: 20200619
  Receipt Date: 20200715
  Transmission Date: 20201103
  Serious: Yes (Hospitalization, Other)
  Sender: FDA-Public Use
  Company Number: US-ROCHE-2623934

PATIENT
  Age: 56 Year
  Sex: Female
  Weight: 69.4 kg

DRUGS (12)
  1. RITUXIMAB. [Suspect]
     Active Substance: RITUXIMAB
     Route: 042
     Dates: start: 20200622
  2. IFOSFAMIDE. [Suspect]
     Active Substance: IFOSFAMIDE
     Dosage: 5000MG/M2, D2 OF CYCLE, NDC # OR UNIQUE ID: 10019?926?02, ONGOING: YES
     Route: 042
     Dates: start: 20200623
  3. VENETOCLAX. [Suspect]
     Active Substance: VENETOCLAX
     Route: 048
     Dates: start: 20200622
  4. ETOPOSIDE. [Suspect]
     Active Substance: ETOPOSIDE
     Route: 042
     Dates: start: 20200622
  5. ETOPOSIDE. [Suspect]
     Active Substance: ETOPOSIDE
     Indication: DIFFUSE LARGE B-CELL LYMPHOMA
     Dosage: 3 DAYS
     Route: 042
     Dates: start: 20200530
  6. VENETOCLAX. [Suspect]
     Active Substance: VENETOCLAX
     Indication: DIFFUSE LARGE B-CELL LYMPHOMA
     Dosage: 5 DAYS
     Route: 048
     Dates: start: 20200530
  7. CARBOPLATIN. [Suspect]
     Active Substance: CARBOPLATIN
     Indication: DIFFUSE LARGE B-CELL LYMPHOMA
     Dosage: 10MG/ML  DAY 2 OF CYCLE
     Route: 042
     Dates: start: 20200531
  8. NEULASTA [Concomitant]
     Active Substance: PEGFILGRASTIM
     Dates: start: 20200601
  9. NEULASTA [Concomitant]
     Active Substance: PEGFILGRASTIM
     Dates: start: 20200624
  10. RITUXIMAB. [Suspect]
     Active Substance: RITUXIMAB
     Indication: DIFFUSE LARGE B-CELL LYMPHOMA
     Route: 042
     Dates: start: 20200530
  11. IFOSFAMIDE. [Suspect]
     Active Substance: IFOSFAMIDE
     Indication: DIFFUSE LARGE B-CELL LYMPHOMA
     Dosage: DAY 2 OF CYCLE
     Route: 042
     Dates: start: 20200531
  12. CARBOPLATIN. [Suspect]
     Active Substance: CARBOPLATIN
     Dosage: DAY 2 OF CYCLE
     Route: 042
     Dates: start: 20200623

REACTIONS (3)
  - Diastolic dysfunction [Recovering/Resolving]
  - Neutrophil count decreased [Recovered/Resolved]
  - Platelet count decreased [Not Recovered/Not Resolved]

NARRATIVE: CASE EVENT DATE: 20200608
